FAERS Safety Report 16417443 (Version 2)
Quarter: 2019Q3

REPORT INFORMATION
  Report Type: Report from Study
  Country: IT (occurrence: IT)
  Receive Date: 20190611
  Receipt Date: 20190709
  Transmission Date: 20191004
  Serious: Yes (Hospitalization, Other)
  Sender: FDA-Public Use
  Company Number: IT-MYLANLABS-2019M1054542

PATIENT
  Age: 86 Year
  Sex: Male
  Weight: 80 kg

DRUGS (8)
  1. FUROSEMIDE. [Suspect]
     Active Substance: FUROSEMIDE
     Indication: HYPOVOLAEMIA
     Dosage: 125 MILLIGRAM, UNK
     Route: 048
     Dates: start: 20181122
  2. METOLAZONE. [Suspect]
     Active Substance: METOLAZONE
     Indication: CONGESTIVE CARDIOMYOPATHY
     Dosage: 5 MILLIGRAM
     Route: 048
     Dates: start: 20180830, end: 20180910
  3. SPIRONOLACTONE. [Suspect]
     Active Substance: SPIRONOLACTONE
     Indication: CONGESTIVE CARDIOMYOPATHY
     Dosage: 37 MILLIGRAM, UNK
     Dates: start: 20180802, end: 20180910
  4. SPIRONOLACTONE. [Suspect]
     Active Substance: SPIRONOLACTONE
     Indication: HYPOVOLAEMIA
     Dosage: 100 MG, UNK
     Route: 048
     Dates: start: 20181122
  5. DAPRODUSTAT [Suspect]
     Active Substance: DAPRODUSTAT
     Indication: NEPHROGENIC ANAEMIA
     Dosage: UNK
     Dates: start: 20171123
  6. METOLAZONE. [Suspect]
     Active Substance: METOLAZONE
     Indication: HYPOVOLAEMIA
     Dosage: 5 MILLIGRAM
     Route: 048
     Dates: start: 20181115
  7. FUROSEMIDE. [Suspect]
     Active Substance: FUROSEMIDE
     Indication: CONGESTIVE CARDIOMYOPATHY
     Dosage: 50 MG, UNK
     Route: 048
     Dates: start: 20180830, end: 20180910
  8. DARBEPOETIN ALFA [Suspect]
     Active Substance: DARBEPOETIN ALFA
     Indication: NEPHROGENIC ANAEMIA
     Dosage: UNK
     Dates: start: 20171123

REACTIONS (1)
  - Acute kidney injury [Recovered/Resolved]

NARRATIVE: CASE EVENT DATE: 20181128
